FAERS Safety Report 19676310 (Version 1)
Quarter: 2021Q3

REPORT INFORMATION
  Report Type: Spontaneous
  Country: CA (occurrence: CA)
  Receive Date: 20210809
  Receipt Date: 20210809
  Transmission Date: 20211014
  Serious: Yes (Hospitalization)
  Sender: FDA-Public Use
  Company Number: CA-MYLANLABS-2021M1046964

PATIENT
  Age: 63 Year
  Sex: Male

DRUGS (4)
  1. IMMUNOGLOBULIN HUMAN NORMAL [Concomitant]
     Active Substance: HUMAN IMMUNOGLOBULIN G
     Dosage: UNK
  2. HEPARIN [Concomitant]
     Active Substance: HEPARIN SODIUM
     Dosage: UNK
  3. FONDAPARINUX [Suspect]
     Active Substance: FONDAPARINUX
     Indication: THROMBOSIS
     Dosage: FOR BODY WT GREATER THAN 100KG
     Route: 058
  4. ALTEPLASE. [Concomitant]
     Active Substance: ALTEPLASE
     Dosage: UNK

REACTIONS (1)
  - Drug ineffective [Unknown]
